FAERS Safety Report 18292339 (Version 2)
Quarter: 2020Q4

REPORT INFORMATION
  Report Type: Spontaneous
  Country: PL (occurrence: PL)
  Receive Date: 20200922
  Receipt Date: 20201003
  Transmission Date: 20210113
  Serious: Yes (Hospitalization, Other)
  Sender: FDA-Public Use
  Company Number: PL-AUROBINDO-AUR-APL-2020-046059

PATIENT
  Age: 58 Year
  Sex: Female

DRUGS (18)
  1. ARIPIPRAZOLE  TABLETS [Suspect]
     Active Substance: ARIPIPRAZOLE
     Dosage: 30 MILLIGRAM, ONCE A DAY
     Route: 048
  2. MEMANTINE. [Suspect]
     Active Substance: MEMANTINE
     Indication: SCHIZOPHRENIA
     Dosage: 10 MILLIGRAM, ONCE A DAY (WEEK 1 TO 2)
     Route: 065
  3. OXAZEPAM. [Suspect]
     Active Substance: OXAZEPAM
     Dosage: 40 MILLIGRAM, ONCE A DAY
     Route: 065
  4. SULPIRIDE [Suspect]
     Active Substance: SULPIRIDE
     Indication: SCHIZOPHRENIA
     Dosage: 600 MILLIGRAM, ONCE A DAY
     Route: 065
  5. FRAXIPARINE [Concomitant]
     Active Substance: NADROPARIN CALCIUM
     Indication: PRODUCT USED FOR UNKNOWN INDICATION
     Dosage: UNK
     Route: 065
  6. SULPIRIDE [Suspect]
     Active Substance: SULPIRIDE
     Dosage: 400 MILLIGRAM, ONCE A DAY
     Route: 065
  7. TIAPRIDE [Suspect]
     Active Substance: TIAPRIDE
     Dosage: 50 MILLIGRAM, ONCE A DAY
     Route: 065
  8. ARIPIPRAZOLE  TABLETS [Suspect]
     Active Substance: ARIPIPRAZOLE
     Indication: SCHIZOPHRENIA
     Dosage: 7.5 MILLIGRAM, ONCE A DAY
     Route: 065
  9. CLOZAPINE. [Suspect]
     Active Substance: CLOZAPINE
     Indication: SCHIZOPHRENIA
     Dosage: UNK
     Route: 065
  10. HALOPERIDOL. [Suspect]
     Active Substance: HALOPERIDOL
     Indication: SCHIZOPHRENIA
     Dosage: UNK
     Route: 065
  11. OXAZEPAM. [Suspect]
     Active Substance: OXAZEPAM
     Indication: SCHIZOPHRENIA
     Dosage: 30 MILLIGRAM, ONCE A DAY
     Route: 065
  12. OXAZEPAM. [Suspect]
     Active Substance: OXAZEPAM
     Dosage: 50 MILLIGRAM, ONCE A DAY
     Route: 065
  13. TIAPRIDE [Suspect]
     Active Substance: TIAPRIDE
     Dosage: 30 MILLIGRAM, ONCE A DAY
     Route: 065
  14. NIMESULIDE [Concomitant]
     Active Substance: NIMESULIDE
     Indication: PRODUCT USED FOR UNKNOWN INDICATION
     Dosage: UNK
     Route: 065
  15. OLANZAPINE. [Suspect]
     Active Substance: OLANZAPINE
     Indication: SCHIZOPHRENIA
     Dosage: 7.5 MILLIGRAM, ONCE A DAY (WEEK 2-4)
     Route: 065
  16. TIAPRIDE [Suspect]
     Active Substance: TIAPRIDE
     Indication: SCHIZOPHRENIA
     Dosage: 100 MILLIGRAM, ONCE A DAY
     Route: 065
  17. AMOXICILLIN. [Concomitant]
     Active Substance: AMOXICILLIN
     Indication: PRODUCT USED FOR UNKNOWN INDICATION
     Dosage: UNK
     Route: 065
  18. BISOPROLOL [Concomitant]
     Active Substance: BISOPROLOL
     Indication: PRODUCT USED FOR UNKNOWN INDICATION
     Dosage: UNK
     Route: 065

REACTIONS (3)
  - Underdose [Unknown]
  - Extrapyramidal disorder [Recovering/Resolving]
  - Delirium [Recovered/Resolved]
